FAERS Safety Report 6436398-2 (Version None)
Quarter: 2009Q4

REPORT INFORMATION
  Report Type: 
  Country: None (occurrence: None)
  Receive Date: 20091111
  Receipt Date: 20091029
  Transmission Date: 20100525
  Serious: Yes (Other)
  Sender: FDA-Public Use
  Company Number: PHHY2009DE04143

PATIENT
  Sex: Male

DRUGS (10)
  1. TASIGNA [Suspect]
     Indication: CHRONIC MYELOID LEUKAEMIA
     Dosage: 400 MG, BID
     Route: 048
     Dates: start: 20090121, end: 20090123
  2. TASIGNA [Suspect]
     Dosage: 400 MG DAILY
     Dates: start: 20090202, end: 20090204
  3. BISOPROLOL [Concomitant]
     Indication: HYPERTENSION
     Dosage: 5 MG (2 TIMES A DAY)
     Route: 048
     Dates: start: 20090114
  4. PANTOPRAZOLE [Concomitant]
     Indication: PROPHYLAXIS
     Dosage: 40 MG, QD
     Route: 048
     Dates: start: 20090113
  5. POSACONAZOLE [Concomitant]
     Indication: ANTIFUNGAL PROPHYLAXIS
     Dosage: 200 MG, TID
     Route: 048
     Dates: start: 20090115
  6. TINIDAZOLE [Concomitant]
     Indication: HYPERTENSION
     Dosage: 4 MG, BID
     Route: 048
     Dates: start: 20090120
  7. MEROPENEM [Concomitant]
     Indication: INFECTION
     Dosage: 1 G, TID
     Route: 042
     Dates: start: 20090122
  8. ONDANSETRON [Concomitant]
     Indication: ANTIEMETIC SUPPORTIVE CARE
     Dosage: 8 MG, BID
     Route: 042
     Dates: start: 20090114, end: 20090124
  9. VANCOMYCIN [Concomitant]
     Indication: INFECTION
     Dosage: 1 G, BID
     Route: 042
     Dates: start: 20090122
  10. CYTARABINE [Concomitant]
     Indication: CHEMOTHERAPY
     Dosage: 170 MG (24 HOURS)
     Dates: start: 20090114, end: 20090122

REACTIONS (2)
  - BLOOD BILIRUBIN INCREASED [None]
  - ELECTROCARDIOGRAM QT PROLONGED [None]
